FAERS Safety Report 13006777 (Version 1)
Quarter: 2016Q4

REPORT INFORMATION
  Report Type: Spontaneous
  Country: US (occurrence: US)
  Receive Date: 20161207
  Receipt Date: 20161207
  Transmission Date: 20170207
  Serious: Yes (Hospitalization, Other)
  Sender: FDA-Public Use
  Company Number: US-SA-2016SA218167

PATIENT
  Age: 80 Year
  Sex: Male

DRUGS (15)
  1. JAKAFI [Suspect]
     Active Substance: RUXOLITINIB
     Indication: MYELOFIBROSIS
     Dosage: STRENGTH- 10 MG TABLET
     Route: 048
     Dates: start: 20130119
  2. VITAMIN C [Concomitant]
     Active Substance: ASCORBIC ACID
     Dates: start: 20110727
  3. ISOSORBIDE DINITRATE. [Concomitant]
     Active Substance: ISOSORBIDE DINITRATE
     Dates: start: 20110727
  4. RANEXA [Concomitant]
     Active Substance: RANOLAZINE
  5. CITRACAL [Concomitant]
     Active Substance: CALCIUM CITRATE
     Dates: start: 20110727
  6. AMLODIPINE BESILATE [Concomitant]
     Active Substance: AMLODIPINE BESYLATE
     Dates: start: 20131213
  7. NITROSTAT [Concomitant]
     Active Substance: NITROGLYCERIN
     Dates: start: 20140508
  8. PLAVIX [Suspect]
     Active Substance: CLOPIDOGREL BISULFATE
     Indication: STENT PLACEMENT
     Route: 048
     Dates: start: 2016
  9. ISOSORBIDE. [Concomitant]
     Active Substance: ISOSORBIDE
  10. CALCIUM [Concomitant]
     Active Substance: CALCIUM
  11. PANTOPRAZOLE SODIUM. [Concomitant]
     Active Substance: PANTOPRAZOLE SODIUM
     Dates: start: 20150325
  12. ATENOLOL. [Concomitant]
     Active Substance: ATENOLOL
     Dates: start: 20110317
  13. ISOSORBIDE MONONITRATE. [Concomitant]
     Active Substance: ISOSORBIDE MONONITRATE
     Dates: start: 20150310
  14. JAKAFI [Suspect]
     Active Substance: RUXOLITINIB
     Indication: MYELOFIBROSIS
     Dosage: DOSE- 5 MG AM AND 10 MG PM
     Route: 048
  15. DILTIAZEM. [Concomitant]
     Active Substance: DILTIAZEM

REACTIONS (22)
  - Iron deficiency anaemia [Unknown]
  - Haematocrit decreased [Recovered/Resolved]
  - Platelet count decreased [Unknown]
  - Dizziness [Unknown]
  - Gastrointestinal motility disorder [Unknown]
  - Contusion [Unknown]
  - Basophil percentage increased [Unknown]
  - Myelofibrosis [Unknown]
  - Red blood cell count decreased [Unknown]
  - Lymphocyte count decreased [Unknown]
  - Dyspnoea [Recovered/Resolved]
  - Blood erythropoietin decreased [Unknown]
  - Normochromic normocytic anaemia [Unknown]
  - Angina pectoris [Unknown]
  - Myelocyte percentage increased [Unknown]
  - Myelocyte count increased [Unknown]
  - Fatigue [Not Recovered/Not Resolved]
  - Anaemia [Recovered/Resolved]
  - Blood lactate dehydrogenase increased [Unknown]
  - Blood sodium decreased [Unknown]
  - Blood chloride decreased [Unknown]
  - Haemoglobin decreased [Recovered/Resolved]

NARRATIVE: CASE EVENT DATE: 2016
